FAERS Safety Report 7265567-7 (Version None)
Quarter: 2011Q1

REPORT INFORMATION
  Report Type: 
  Country: None (occurrence: None)
  Receive Date: 20110131
  Receipt Date: 20110125
  Transmission Date: 20110831
  Serious: Yes (Other)
  Sender: FDA-Public Use
  Company Number: JP-B.I. PHARMACEUTICALS,INC./RIDGEFIELD-2010-BP-12115NB

PATIENT
  Sex: Male
  Weight: 70 kg

DRUGS (10)
  1. ASTONIL [Concomitant]
     Indication: HYPERTENSION
     Dosage: 10 MG
     Route: 048
     Dates: start: 20030101
  2. REPTOR [Concomitant]
     Indication: PSORIASIS
     Dosage: 100 MG
     Route: 048
     Dates: start: 20050101
  3. MICOMBI COMBINATION [Suspect]
     Indication: HYPERTENSION
     Dosage: 1DF
     Route: 048
     Dates: start: 20090101
  4. NORVASC [Concomitant]
     Indication: HYPERTENSION
     Dosage: 2.5 MG
     Route: 048
     Dates: start: 20030101
  5. AMLODIPINE [Concomitant]
     Indication: HYPERTENSION
     Dosage: 5 MG
     Route: 048
     Dates: start: 20030101
  6. UROLEAP [Concomitant]
     Indication: HYPERURICAEMIA
     Dosage: 50 MG
     Route: 048
     Dates: start: 20030101
  7. ASPIRIN [Concomitant]
     Indication: HYPERTENSION
     Dosage: 1000 MG
     Route: 048
     Dates: start: 20030101
  8. PINALOC [Concomitant]
     Indication: HYPERURICAEMIA
     Dosage: 3DF
     Route: 048
     Dates: start: 20030101
  9. BONALFA [Concomitant]
     Indication: PSORIASIS
     Dosage: 20 MCG
     Dates: start: 20000101
  10. VESICARE [Suspect]
     Indication: POLLAKIURIA
     Dosage: 5 MG
     Route: 048
     Dates: start: 20060701, end: 20101021

REACTIONS (2)
  - URINARY RETENTION [None]
  - OEDEMA [None]
